FAERS Safety Report 7311334-5 (Version None)
Quarter: 2011Q1

REPORT INFORMATION
  Report Type: 
  Country: None (occurrence: None)
  Receive Date: 20110224
  Receipt Date: 20110218
  Transmission Date: 20110831
  Serious: Yes (Hospitalization)
  Sender: FDA-Public Use
  Company Number: JP-ACTELION-A-CH2011-45355

PATIENT
  Sex: Female
  Weight: 40 kg

DRUGS (11)
  1. BERAPROST SODIUM [Concomitant]
  2. MISOPROSTOL [Concomitant]
  3. RABEPRAZOLE SODIUM [Concomitant]
  4. TRACLEER [Suspect]
     Indication: PULMONARY ARTERIAL HYPERTENSION
     Dosage: 62.5 MG, QD
     Route: 048
     Dates: start: 20091013, end: 20091016
  5. PREDNISOLONE [Concomitant]
  6. SARPOGRELATE HYDROCHLORIDE [Concomitant]
  7. ASPIRIN [Concomitant]
  8. CLOPIDOGREL SULFATE [Concomitant]
  9. TRACLEER [Suspect]
     Dosage: 31.25 MG, QD
     Route: 048
     Dates: start: 20091017, end: 20091020
  10. TORSEMIDE [Concomitant]
  11. NICORANDIL [Concomitant]

REACTIONS (3)
  - DIARRHOEA [None]
  - NAUSEA [None]
  - PARENTERAL NUTRITION [None]
